FAERS Safety Report 7617621-5 (Version None)
Quarter: 2011Q3

REPORT INFORMATION
  Report Type: 
  Country: None (occurrence: None)
  Receive Date: 20110718
  Receipt Date: 20110708
  Transmission Date: 20111222
  Serious: Yes (Other)
  Sender: FDA-Public Use
  Company Number: US-GENZYME-FABR-1001692

PATIENT

DRUGS (9)
  1. FABRAZYME [Suspect]
  2. FABRAZYME [Suspect]
     Dosage: UNK
     Route: 042
     Dates: start: 20040101
  3. PHENYTOIN [Concomitant]
     Indication: NEUROPATHY PERIPHERAL
     Dosage: 100 MG, BID
     Dates: start: 20070101
  4. CITALOPRAM HYDROBROMIDE [Concomitant]
     Indication: DEPRESSION
     Dosage: 20 MG, QD
     Dates: start: 20070101
  5. FABRAZYME [Suspect]
     Indication: FABRY'S DISEASE
     Dosage: 40 MG, Q2W
     Route: 042
  6. GABAPENTIN [Concomitant]
     Indication: NEURALGIA
     Dosage: 600 MG, TID
     Dates: start: 20070101
  7. LISINOPRIL [Concomitant]
     Indication: PROPHYLAXIS
     Dosage: 2.5 MG, QD
     Route: 048
     Dates: start: 20100101
  8. FABRAZYME [Suspect]
     Dosage: 85 MG, Q2W
     Route: 042
     Dates: start: 20080919
  9. NAPROXEN (ALEVE) [Concomitant]
     Indication: ARTHRALGIA
     Dosage: 220 MG, QD
     Dates: start: 20070101

REACTIONS (2)
  - DEAFNESS UNILATERAL [None]
  - MALAISE [None]
